FAERS Safety Report 12637226 (Version 1)
Quarter: 2016Q3

REPORT INFORMATION
  Report Type: Spontaneous
  Country: US (occurrence: US)
  Receive Date: 20160809
  Receipt Date: 20160809
  Transmission Date: 20161109
  Serious: No
  Sender: FDA-Public Use
  Company Number: US-BEH-2015054131

PATIENT
  Sex: Male

DRUGS (29)
  1. SODIUM CHLORIDE. [Concomitant]
     Active Substance: SODIUM CHLORIDE
     Indication: FLUSHING
  2. FLONASE [Concomitant]
     Active Substance: FLUTICASONE PROPIONATE
  3. PRIVIGEN [Suspect]
     Active Substance: HUMAN IMMUNOGLOBULIN G
     Indication: ACUTE LYMPHOCYTIC LEUKAEMIA
     Dosage: 5 GM VIALS
     Route: 042
  4. PRIVIGEN [Suspect]
     Active Substance: HUMAN IMMUNOGLOBULIN G
     Indication: IMMUNODEFICIENCY COMMON VARIABLE
     Dosage: 20 GM VIALS
     Route: 042
  5. ANDROGEL [Concomitant]
     Active Substance: TESTOSTERONE
  6. IRON [Concomitant]
     Active Substance: IRON
  7. SIROLIMUS. [Concomitant]
     Active Substance: SIROLIMUS
  8. PREDNISONE. [Concomitant]
     Active Substance: PREDNISONE
  9. PRILOSEC [Concomitant]
     Active Substance: OMEPRAZOLE MAGNESIUM
  10. LIDOCAINE. [Concomitant]
     Active Substance: LIDOCAINE
  11. VALACICLOVIR [Concomitant]
     Active Substance: VALACYCLOVIR HYDROCHLORIDE
  12. DOXYCYCLINE. [Concomitant]
     Active Substance: DOXYCYCLINE
  13. ASPIRIN. [Concomitant]
     Active Substance: ASPIRIN
  14. EYE DROP [Concomitant]
     Active Substance: UNSPECIFIED INGREDIENT
  15. BIOTIN [Concomitant]
     Active Substance: BIOTIN
  16. SINGULAIR [Concomitant]
     Active Substance: MONTELUKAST SODIUM
  17. SOTAL [Concomitant]
  18. RESTASIS [Concomitant]
     Active Substance: CYCLOSPORINE
  19. ADVAIR HFA [Concomitant]
     Active Substance: FLUTICASONE PROPIONATE\SALMETEROL XINAFOATE
  20. CALCIUM [Concomitant]
     Active Substance: CALCIUM
  21. PRIVIGEN [Suspect]
     Active Substance: HUMAN IMMUNOGLOBULIN G
     Indication: RHINITIS
     Dosage: 20 GM VIALS
     Route: 042
  22. ACETAMINOPHEN. [Concomitant]
     Active Substance: ACETAMINOPHEN
  23. MAGNESIUM [Concomitant]
     Active Substance: MAGNESIUM
  24. FISH OIL [Concomitant]
     Active Substance: FISH OIL
  25. PRIVIGEN [Suspect]
     Active Substance: HUMAN IMMUNOGLOBULIN G
     Indication: BONE MARROW TRANSPLANT
     Dosage: 20 GM VIALS
     Route: 042
  26. HEPARIN [Concomitant]
     Active Substance: HEPARIN SODIUM
     Indication: FLUSHING
  27. CENTRUM SILVER [Concomitant]
     Active Substance: MINERALS\VITAMINS
  28. ATOVAQUONE. [Concomitant]
     Active Substance: ATOVAQUONE
  29. PRIVIGEN [Suspect]
     Active Substance: HUMAN IMMUNOGLOBULIN G
     Indication: GRAFT VERSUS HOST DISEASE
     Dosage: 20 GM VIALS
     Route: 042

REACTIONS (3)
  - Cough [Unknown]
  - Pyrexia [Unknown]
  - Chills [Unknown]
